FAERS Safety Report 15998509 (Version 1)
Quarter: 2019Q1

REPORT INFORMATION
  Report Type: Spontaneous
  Country: FR (occurrence: FR)
  Receive Date: 20190223
  Receipt Date: 20190223
  Transmission Date: 20190418
  Serious: Yes (Hospitalization)
  Sender: FDA-Public Use
  Company Number: FR-ACCORD-108420

PATIENT
  Age: 67 Year
  Sex: Male
  Weight: 83 kg

DRUGS (2)
  1. IRINOTECAN [Suspect]
     Active Substance: IRINOTECAN
     Indication: PRODUCT USED FOR UNKNOWN INDICATION
     Route: 042
     Dates: start: 20170717, end: 20171023
  2. AVASTIN [Suspect]
     Active Substance: BEVACIZUMAB
     Indication: COLORECTAL CANCER
     Route: 048
     Dates: start: 20170717, end: 20171023

REACTIONS (2)
  - Intestinal perforation [Recovered/Resolved with Sequelae]
  - Pneumoperitoneum [Recovered/Resolved with Sequelae]

NARRATIVE: CASE EVENT DATE: 20171103
